FAERS Safety Report 4824201-3 (Version None)
Quarter: 2005Q4

REPORT INFORMATION
  Report Type: 
  Country: None (occurrence: None)
  Receive Date: 20051108
  Receipt Date: 20051027
  Transmission Date: 20060501
  Serious: Yes (Hospitalization, Other)
  Sender: FDA-Public Use
  Company Number: USA0508106423

PATIENT
  Age: 78 Year
  Sex: Female

DRUGS (1)
  1. FORTEO [Suspect]
     Indication: OSTEOPOROSIS
     Dosage: 20 UG/1 DAY
     Dates: start: 20050529

REACTIONS (9)
  - CARDIOVASCULAR DISORDER [None]
  - INJECTION SITE BRUISING [None]
  - KIDNEY ENLARGEMENT [None]
  - MEDICAL DEVICE COMPLICATION [None]
  - PAIN [None]
  - PHARMACEUTICAL PRODUCT COMPLAINT [None]
  - SKIN DISCOLOURATION [None]
  - URINARY TRACT OBSTRUCTION [None]
  - VOMITING [None]
